FAERS Safety Report 8985505 (Version 1)
Quarter: 2012Q4

REPORT INFORMATION
  Report Type: 
  Country: GB (occurrence: IE)
  Receive Date: 20121226
  Receipt Date: 20121226
  Transmission Date: 20130627
  Serious: Yes (Other)
  Sender: FDA-Public Use
  Company Number: IE-B.I. PHARMACEUTICALS,INC./RIDGEFIELD-2012-UK-01963UK

PATIENT
  Sex: Male
  Weight: 75 kg

DRUGS (5)
  1. PRADAXA [Suspect]
     Indication: ATRIAL FIBRILLATION
     Dosage: 300 mg
     Route: 048
     Dates: start: 20121114, end: 20121125
  2. TRITACE [Concomitant]
     Indication: BLOOD PRESSURE
     Dosage: 5 mg
     Route: 048
  3. NUSEALS ASPIRIN [Concomitant]
     Indication: ATRIAL FIBRILLATION
     Dosage: 75 mg
     Route: 048
  4. CARDURA [Concomitant]
     Indication: BLOOD PRESSURE
     Dosage: 2.5 mg
     Route: 048
  5. LIPITOR [Concomitant]
     Indication: BLOOD CHOLESTEROL INCREASED
     Dosage: 40 mg

REACTIONS (2)
  - Feeling abnormal [Recovered/Resolved]
  - Nausea [Recovered/Resolved]
